FAERS Safety Report 8025934-0 (Version None)
Quarter: 2012Q1

REPORT INFORMATION
  Report Type: 
  Country: None (occurrence: None)
  Receive Date: 20120105
  Receipt Date: 20110510
  Transmission Date: 20120608
  Serious: No
  Sender: FDA-Public Use
  Company Number: US-ABBOTT-11P-163-0724319-00

PATIENT
  Sex: Female
  Weight: 62.652 kg

DRUGS (8)
  1. VITAMIN E [Concomitant]
     Indication: VITAMIN SUPPLEMENTATION
  2. VITAMIN D [Concomitant]
     Indication: VITAMIN SUPPLEMENTATION
  3. SYNTHROID [Suspect]
     Indication: HYPOTHYROIDISM
     Dates: start: 20090101
  4. CRESTOR [Concomitant]
     Indication: BLOOD CHOLESTEROL INCREASED
  5. SYNTHROID [Suspect]
     Dates: start: 20100701
  6. NORVASC [Concomitant]
     Indication: HYPERTENSION
  7. LOVAZA [Concomitant]
     Indication: BLOOD TRIGLYCERIDES INCREASED
  8. CENTRUM MULTIVITAMIN [Concomitant]
     Indication: VITAMIN SUPPLEMENTATION

REACTIONS (8)
  - TREMOR [None]
  - FATIGUE [None]
  - DROOLING [None]
  - PRURITUS [None]
  - BREAST ENLARGEMENT [None]
  - ALOPECIA [None]
  - HYPOAESTHESIA [None]
  - INTERVERTEBRAL DISC PROTRUSION [None]
